FAERS Safety Report 12078523 (Version 3)
Quarter: 2016Q1

REPORT INFORMATION
  Report Type: Report from Study
  Country: DE (occurrence: DE)
  Receive Date: 20160216
  Receipt Date: 20160318
  Transmission Date: 20160526
  Serious: Yes (Other)
  Sender: FDA-Public Use
  Company Number: DE-ROCHE-1710468

PATIENT

DRUGS (1)
  1. RITUXIMAB [Suspect]
     Active Substance: RITUXIMAB
     Indication: DIFFUSE LARGE B-CELL LYMPHOMA
     Dosage: 8 DOSES
     Route: 042

REACTIONS (4)
  - Neoplasm [Unknown]
  - Leukopenia [Unknown]
  - Nervous system disorder [Unknown]
  - Infection [Unknown]
